FAERS Safety Report 20769135 (Version 1)
Quarter: 2022Q2

REPORT INFORMATION
  Report Type: Spontaneous
  Country: US (occurrence: None)
  Receive Date: 20220428
  Receipt Date: 20220428
  Transmission Date: 20220721
  Serious: Yes (Hospitalization, Other)
  Sender: FDA-Public Use
  Company Number: None

PATIENT
  Age: 68 Year
  Sex: Female
  Weight: 151 kg

DRUGS (14)
  1. SKYRIZI [Suspect]
     Active Substance: RISANKIZUMAB-RZAA
     Indication: Psoriasis
     Dosage: OTHER FREQUENCY : EVERY 12 WEEKS;?
     Route: 058
  2. ATORVASTATIN [Concomitant]
     Active Substance: ATORVASTATIN
     Dates: start: 20181004, end: 20220106
  3. BISACODYL [Concomitant]
     Active Substance: BISACODYL
     Dates: start: 20210813
  4. BUMETANIDE [Concomitant]
     Active Substance: BUMETANIDE
     Dates: start: 20210619
  5. DOCUSATE [Concomitant]
     Active Substance: DOCUSATE
     Dates: start: 20210813
  6. GABAPENTIN [Concomitant]
     Active Substance: GABAPENTIN
     Dates: start: 20210813
  7. INSULIN GLARGINE [Concomitant]
     Active Substance: INSULIN GLARGINE
     Dates: start: 20210618
  8. INSULIN LISPRO [Concomitant]
     Active Substance: INSULIN LISPRO
     Dates: start: 20210618
  9. LEVOTHYROXINE [Concomitant]
     Active Substance: LEVOTHYROXINE
     Dates: start: 20180902
  10. MAGNESIUM OXIDE [Concomitant]
     Active Substance: MAGNESIUM OXIDE
     Dates: start: 20210813
  11. MELATONIN [Concomitant]
     Active Substance: MELATONIN
     Dates: start: 20210813
  12. METOPROLOL [Concomitant]
     Active Substance: METOPROLOL
     Dates: start: 20181011
  13. SENNA [Concomitant]
     Active Substance: SENNA LEAF\SENNOSIDES\SENNOSIDES A AND B
     Dates: start: 20210813
  14. WARFARIN [Concomitant]
     Active Substance: WARFARIN
     Dates: start: 20210813

REACTIONS (2)
  - Mental status changes [None]
  - Posterior reversible encephalopathy syndrome [None]

NARRATIVE: CASE EVENT DATE: 20220106
